FAERS Safety Report 7028157-7 (Version None)
Quarter: 2010Q4

REPORT INFORMATION
  Report Type: 
  Country: None (occurrence: None)
  Receive Date: 20101005
  Receipt Date: 20100927
  Transmission Date: 20110411
  Serious: No
  Sender: FDA-Public Use
  Company Number: JP-JNJFOC-20100906215

PATIENT
  Age: 60 Year
  Sex: Male

DRUGS (12)
  1. DUROTEP MT [Suspect]
     Indication: CANCER PAIN
     Route: 062
  2. DUROTEP MT [Suspect]
     Route: 062
  3. DUROTEP MT [Suspect]
     Route: 062
  4. DUROTEP MT [Suspect]
     Route: 062
  5. DUROTEP MT [Suspect]
     Route: 062
  6. TERNELIN [Suspect]
     Indication: MUSCULOSKELETAL PAIN
     Dosage: EVERY 3 DAYS
     Route: 048
  7. TERNELIN [Suspect]
     Route: 048
  8. MOBIC [Concomitant]
     Route: 048
  9. LASIX [Concomitant]
     Route: 065
  10. OMEPRAL [Concomitant]
     Route: 065
  11. PAXIL [Concomitant]
     Route: 048
  12. MORPHINE HYDROCHLORIDE [Concomitant]
     Route: 065

REACTIONS (3)
  - HYPERHIDROSIS [None]
  - INCORRECT DOSE ADMINISTERED [None]
  - SOMNOLENCE [None]
